FAERS Safety Report 5822614-4 (Version None)
Quarter: 2008Q3

REPORT INFORMATION
  Report Type: 
  Country: None (occurrence: None)
  Receive Date: 20080725
  Receipt Date: 20080717
  Transmission Date: 20090109
  Serious: Yes (Other)
  Sender: FDA-Public Use
  Company Number: US-BRISTOL-MYERS SQUIBB COMPANY-14269260

PATIENT
  Age: 25 Year
  Sex: Female

DRUGS (5)
  1. DIDANOSINE [Suspect]
     Indication: ANTIRETROVIRAL THERAPY
  2. LAMIVUDINE [Suspect]
     Indication: ANTIRETROVIRAL THERAPY
  3. SAQUINAVIR [Suspect]
     Indication: ANTIRETROVIRAL THERAPY
  4. ZIDOVUDINE [Suspect]
     Indication: ANTIRETROVIRAL THERAPY
  5. NELFINAVIR [Suspect]
     Indication: ANTIRETROVIRAL THERAPY

REACTIONS (2)
  - STILLBIRTH [None]
  - TWIN PREGNANCY [None]
